FAERS Safety Report 6705811-5 (Version None)
Quarter: 2010Q2

REPORT INFORMATION
  Report Type: 
  Country: None (occurrence: None)
  Receive Date: 20100503
  Receipt Date: 20100409
  Transmission Date: 20101027
  Serious: Yes (Hospitalization, Other)
  Sender: FDA-Public Use
  Company Number: US-BAYER-200939512NA

PATIENT
  Age: 26 Year
  Sex: Female
  Weight: 86 kg

DRUGS (8)
  1. YASMIN [Suspect]
     Indication: CONTRACEPTION
     Route: 048
     Dates: start: 20060701, end: 20090408
  2. AZITHROMYCIN [Concomitant]
     Dates: start: 20081101
  3. IBUPROFEN [Concomitant]
     Dates: start: 20051201, end: 20071201
  4. ADVIL [Concomitant]
     Dates: start: 20051201, end: 20071201
  5. TYLENOL-500 [Concomitant]
     Dates: start: 20051201, end: 20071201
  6. RETIN-A [Concomitant]
     Dates: start: 20051201, end: 20071201
  7. GUMMY VITAMINS [Concomitant]
  8. UNKNOWN DRUG [Concomitant]
     Indication: ASTHMA
     Dosage: ONCE A YEAR
     Route: 055

REACTIONS (8)
  - COUGH [None]
  - DEEP VEIN THROMBOSIS [None]
  - DIZZINESS [None]
  - DYSPNOEA [None]
  - MUSCULAR WEAKNESS [None]
  - PULMONARY EMBOLISM [None]
  - PULMONARY HYPERTENSION [None]
  - SINUS TACHYCARDIA [None]
